FAERS Safety Report 9841381 (Version 1)
Quarter: 2013Q4

REPORT INFORMATION
  Report Type: Spontaneous
  Country: US (occurrence: None)
  Receive Date: 20131223
  Receipt Date: 20131223
  Transmission Date: 20140711
  Serious: No
  Sender: FDA-Public Use
  Company Number: 221471LEO

PATIENT
  Age: 62 Year
  Sex: 0

DRUGS (5)
  1. PICATO [Suspect]
     Route: 061
     Dates: start: 20130427, end: 20130429
  2. VITAMINS(VITAMINS NOS) [Concomitant]
  3. CALCIUM(CALCIUM) [Concomitant]
  4. BAB ASA (ACETYLSALICYLIC ACID) [Concomitant]
  5. GLOUSAMINE(GLUCOSAMINE) [Concomitant]

REACTIONS (6)
  - Application site vesicles [None]
  - Application site pruritus [None]
  - Application site erythema [None]
  - Incorrect dose administered [None]
  - Off label use [None]
  - Drug administered at inappropriate site [None]
